FAERS Safety Report 9360381 (Version 1)
Quarter: 2013Q2

REPORT INFORMATION
  Report Type: Spontaneous
  Country: FR (occurrence: FR)
  Receive Date: 20130621
  Receipt Date: 20130621
  Transmission Date: 20140414
  Serious: Yes (Other)
  Sender: FDA-Public Use
  Company Number: FR-ELI_LILLY_AND_COMPANY-FR201306003579

PATIENT
  Age: 50 Year
  Sex: Female

DRUGS (4)
  1. CYMBALTA [Suspect]
     Dosage: 120 MG, UNKNOWN
     Route: 065
  2. VALDOXAN [Suspect]
     Dosage: UNK, UNKNOWN
     Route: 065
  3. LANTUS [Concomitant]
     Dosage: UNK, UNKNOWN
     Route: 065
  4. METFORMINE [Concomitant]
     Dosage: 3400 DF, QD
     Route: 065

REACTIONS (1)
  - Hypoglycaemic unconsciousness [Recovered/Resolved]
